FAERS Safety Report 15325493 (Version 1)
Quarter: 2018Q3

REPORT INFORMATION
  Report Type: Spontaneous
  Country: US (occurrence: US)
  Receive Date: 20180828
  Receipt Date: 20180828
  Transmission Date: 20181010
  Serious: No
  Sender: FDA-Public Use
  Company Number: US-009507513-1808USA011321

PATIENT
  Sex: Female
  Weight: 77.1 kg

DRUGS (2)
  1. PRINIVIL [Suspect]
     Active Substance: LISINOPRIL
     Indication: HYPERTENSION
     Dosage: ONE TABLET A DAY OF 5 MG
     Route: 048
     Dates: start: 2014, end: 2016
  2. PRINIVIL [Suspect]
     Active Substance: LISINOPRIL
     Indication: HYPERTENSION
     Dosage: ONE TABLET A DAY OF 10 MG
     Route: 048
     Dates: start: 2013, end: 2014

REACTIONS (1)
  - Drug ineffective [Unknown]

NARRATIVE: CASE EVENT DATE: 2016
